FAERS Safety Report 4984405-6 (Version None)
Quarter: 2006Q2

REPORT INFORMATION
  Report Type: 
  Country: None (occurrence: None)
  Receive Date: 20060421
  Receipt Date: 20060411
  Transmission Date: 20061013
  Serious: Yes (Other)
  Sender: FDA-Public Use
  Company Number: 2005091524

PATIENT
  Age: 67 Year
  Sex: Male

DRUGS (2)
  1. GLIBENCLAMIDE TABLET (GLIBENCLAMIDE) [Suspect]
     Indication: DIABETES MELLITUS
  2. ANTI-DIABETICS (ANTI-DIABETICS) [Suspect]
     Indication: DIABETES MELLITUS

REACTIONS (3)
  - ARRHYTHMIA [None]
  - DYSPNOEA [None]
  - THERAPY NON-RESPONDER [None]
